FAERS Safety Report 22314611 (Version 2)
Quarter: 2023Q2

REPORT INFORMATION
  Report Type: Report from Study
  Country: US (occurrence: US)
  Receive Date: 20230512
  Receipt Date: 20230513
  Transmission Date: 20230721
  Serious: Yes (Hospitalization)
  Sender: FDA-Public Use
  Company Number: US-JNJFOC-20230507733

PATIENT
  Age: 61 Year
  Sex: Female

DRUGS (1)
  1. MACITENTAN [Suspect]
     Active Substance: MACITENTAN
     Indication: Pulmonary arterial hypertension
     Route: 048
     Dates: start: 20230406, end: 20230408

REACTIONS (3)
  - Atrial fibrillation [Recovered/Resolved]
  - Weight increased [Recovered/Resolved]
  - Thyroid hormones increased [Unknown]

NARRATIVE: CASE EVENT DATE: 20230406
